FAERS Safety Report 5015902-5 (Version None)
Quarter: 2006Q2

REPORT INFORMATION
  Report Type: 
  Country: None (occurrence: None)
  Receive Date: 20060425
  Receipt Date: 20060204
  Transmission Date: 20061013
  Serious: Yes (Other)
  Sender: FDA-Public Use
  Company Number: 219440

PATIENT
  Age: 47 Year
  Sex: Female
  Weight: 97.5 kg

DRUGS (8)
  1. XOLAIR [Suspect]
     Indication: ASTHMA
     Dosage: 225 MG, SUBCUTANEOUS
     Route: 058
     Dates: start: 20051104, end: 20051104
  2. MEDROL ACETATE [Concomitant]
  3. SINGULAIR [Concomitant]
  4. ALLEGRA [Concomitant]
  5. ATARAX [Concomitant]
  6. SYNTHROID [Concomitant]
  7. ADVAIR DISKUS 100/50 [Concomitant]
  8. ALBUEROL (ALBUTEROL/ALBUTEROL SULFATE) [Concomitant]

REACTIONS (2)
  - CHOKING [None]
  - SWELLING FACE [None]
